FAERS Safety Report 9199470 (Version 7)
Quarter: 2013Q3

REPORT INFORMATION
  Report Type: Spontaneous
  Country: US (occurrence: US)
  Receive Date: 20130329
  Receipt Date: 20130906
  Transmission Date: 20140515
  Serious: Yes (Hospitalization, Other)
  Sender: FDA-Public Use
  Company Number: US-PFIZER INC-2013098805

PATIENT
  Age: 60 Year
  Sex: Female

DRUGS (1)
  1. XELJANZ [Suspect]
     Indication: RHEUMATOID ARTHRITIS
     Dosage: 5 MG, 2X/DAY
     Route: 048
     Dates: start: 201301

REACTIONS (5)
  - Pneumonia [Recovered/Resolved]
  - Pulmonary oedema [Unknown]
  - Dyspnoea [Unknown]
  - Headache [Recovered/Resolved]
  - Abdominal discomfort [Recovered/Resolved]
